FAERS Safety Report 21374558 (Version 2)
Quarter: 2023Q4

REPORT INFORMATION
  Report Type: Spontaneous
  Country: GB (occurrence: GB)
  Receive Date: 20220926
  Receipt Date: 20231113
  Transmission Date: 20240110
  Serious: No
  Sender: FDA-Public Use
  Company Number: GB-CELLTRION INC.-2022GB015501

PATIENT

DRUGS (1)
  1. INFLIXIMAB [Suspect]
     Active Substance: INFLIXIMAB
     Indication: Behcet^s syndrome
     Dosage: 120 MG, EVERY 2 WEEKS
     Route: 058
     Dates: start: 202209

REACTIONS (1)
  - Off label use [Unknown]
